FAERS Safety Report 6917277-0 (Version None)
Quarter: 2010Q3

REPORT INFORMATION
  Report Type: 
  Country: None (occurrence: None)
  Receive Date: 20100810
  Receipt Date: 20100804
  Transmission Date: 20110219
  Serious: Yes (Hospitalization)
  Sender: FDA-Public Use
  Company Number: US-MERCK-1008USA00564

PATIENT
  Age: 80 Year
  Sex: Female

DRUGS (9)
  1. PRINIVIL [Suspect]
     Route: 048
  2. HYDRODIURIL [Suspect]
     Route: 048
  3. ASPIRIN [Suspect]
     Route: 065
  4. DIOVAN [Concomitant]
     Route: 065
  5. VYTORIN [Concomitant]
     Route: 048
  6. OXYBUTYNIN [Concomitant]
     Route: 065
  7. AMLODIPINE [Concomitant]
     Route: 065
  8. PLAVIX [Suspect]
     Route: 065
  9. MELOXICAM [Suspect]
     Route: 065

REACTIONS (2)
  - COLITIS ISCHAEMIC [None]
  - ELECTROLYTE IMBALANCE [None]
